FAERS Safety Report 7734781-6 (Version None)
Quarter: 2011Q3

REPORT INFORMATION
  Report Type: 
  Country: None (occurrence: None)
  Receive Date: 20110907
  Receipt Date: 20110829
  Transmission Date: 20111222
  Serious: Yes (Other)
  Sender: FDA-Public Use
  Company Number: BR-BRISTOL-MYERS SQUIBB COMPANY-16017386

PATIENT
  Age: 46 Year
  Sex: Female

DRUGS (3)
  1. CELLCEPT [Suspect]
     Indication: RENAL TRANSPLANT
     Dates: start: 20070322
  2. BELATACEPT [Suspect]
     Indication: RENAL TRANSPLANT
     Dosage: NO OF COURSES:60
     Route: 042
     Dates: start: 20070322
  3. PREDNISONE [Suspect]
     Indication: RENAL TRANSPLANT
     Dates: start: 20071005

REACTIONS (1)
  - OVARIAN ABSCESS [None]
